FAERS Safety Report 22193906 (Version 1)
Quarter: 2023Q2

REPORT INFORMATION
  Report Type: Other
  Country: DE (occurrence: DE)
  Receive Date: 20230410
  Receipt Date: 20230410
  Transmission Date: 20230721
  Serious: Yes (Other)
  Sender: FDA-Public Use
  Company Number: DE-DCGMA-23200666

PATIENT

DRUGS (2)
  1. EZETIMIBE [Suspect]
     Active Substance: EZETIMIBE
     Indication: Hyperlipidaemia
     Dosage: UNK
     Route: 048
     Dates: start: 20210923, end: 20220525
  2. BEMPEDOIC ACID [Suspect]
     Active Substance: BEMPEDOIC ACID
     Indication: Hyperlipidaemia
     Dosage: UNK
     Route: 048
     Dates: start: 20220217, end: 20220525

REACTIONS (3)
  - Paralysis [Recovered/Resolved]
  - Myoclonus [Recovered/Resolved]
  - Myalgia [Recovered/Resolved]

NARRATIVE: CASE EVENT DATE: 20220501
